FAERS Safety Report 6007517-7 (Version None)
Quarter: 2008Q4

REPORT INFORMATION
  Report Type: 
  Country: None (occurrence: None)
  Receive Date: 20081217
  Receipt Date: 20080501
  Transmission Date: 20090506
  Serious: No
  Sender: FDA-Public Use
  Company Number: US-ASTRAZENECA-2008UW09040

PATIENT
  Age: 87 Year
  Sex: Male
  Weight: 63.5 kg

DRUGS (9)
  1. CRESTOR [Suspect]
     Indication: BLOOD CHOLESTEROL INCREASED
     Route: 048
  2. SINGULAIR [Concomitant]
  3. PROTONIX [Concomitant]
  4. FLOMAX [Concomitant]
  5. AEROBID [Concomitant]
  6. LASIX [Concomitant]
  7. TRAMADOL HCL [Concomitant]
  8. DILTIAZEM [Concomitant]
  9. ASPIRIN [Concomitant]

REACTIONS (1)
  - OEDEMA PERIPHERAL [None]
